FAERS Safety Report 19935333 (Version 2)
Quarter: 2021Q4

REPORT INFORMATION
  Report Type: Spontaneous
  Country: JP (occurrence: JP)
  Receive Date: 20211008
  Receipt Date: 20211108
  Transmission Date: 20220303
  Serious: Yes (Other)
  Sender: FDA-Public Use
  Company Number: JP-GILEAD-2021-0551422

PATIENT
  Age: 80 Year
  Sex: Male

DRUGS (4)
  1. VEKLURY [Suspect]
     Active Substance: REMDESIVIR
     Indication: COVID-19
     Dosage: UNK
     Route: 065
  2. DEXAMETHASONE [Concomitant]
     Active Substance: DEXAMETHASONE
     Indication: COVID-19
  3. NICORANDIL [Concomitant]
     Active Substance: NICORANDIL
     Indication: Myocardial infarction
  4. ARGATROBAN [Concomitant]
     Active Substance: ARGATROBAN
     Indication: Heparin-induced thrombocytopenia

REACTIONS (3)
  - Atrial fibrillation [Unknown]
  - Acute kidney injury [Unknown]
  - Fibrin D dimer increased [Unknown]
